FAERS Safety Report 9536089 (Version 2)
Quarter: 2013Q4

REPORT INFORMATION
  Report Type: Spontaneous
  Country: JP (occurrence: JP)
  Receive Date: 20130919
  Receipt Date: 20131002
  Transmission Date: 20140711
  Serious: Yes (Other)
  Sender: FDA-Public Use
  Company Number: JP-ROCHE-1276921

PATIENT
  Age: 40 Year
  Sex: Male

DRUGS (7)
  1. XELODA [Suspect]
     Indication: COLON CANCER
     Route: 048
     Dates: start: 201101
  2. XELODA [Suspect]
     Indication: COLON CANCER
     Dosage: DOSE REDUCED
     Route: 048
  3. XELODA [Suspect]
     Indication: COLON CANCER
     Route: 048
  4. AVASTIN [Suspect]
     Indication: COLON CANCER
     Route: 041
     Dates: start: 201101
  5. ELPLAT [Suspect]
     Indication: COLON CANCER
     Route: 041
     Dates: start: 201101
  6. ELPLAT [Suspect]
     Indication: COLON CANCER
     Route: 041
  7. ELPLAT [Suspect]
     Indication: COLON CANCER
     Route: 041

REACTIONS (4)
  - Platelet count decreased [Unknown]
  - Splenomegaly [Unknown]
  - Varices oesophageal [Unknown]
  - White blood cell count decreased [Unknown]
